FAERS Safety Report 25209756 (Version 1)
Quarter: 2025Q2

REPORT INFORMATION
  Report Type: Spontaneous
  Country: CN (occurrence: CN)
  Receive Date: 20250417
  Receipt Date: 20250417
  Transmission Date: 20250716
  Serious: Yes (Other)
  Sender: Unknown Manufacturer
  Company Number: CN-ASTRAZENECA-202504CHN002737CN

PATIENT

DRUGS (1)
  1. METOPROLOL SUCCINATE [Suspect]
     Active Substance: METOPROLOL SUCCINATE
     Indication: Hypertension
     Dosage: 47.50 MILLIGRAM, QD
     Route: 048
     Dates: start: 20250313, end: 20250316

REACTIONS (2)
  - Abdominal distension [Recovering/Resolving]
  - Abdominal pain upper [Unknown]

NARRATIVE: CASE EVENT DATE: 20250316
